FAERS Safety Report 6149894-2 (Version None)
Quarter: 2009Q2

REPORT INFORMATION
  Report Type: 
  Country: None (occurrence: None)
  Receive Date: 20090407
  Receipt Date: 20090331
  Transmission Date: 20091009
  Serious: Yes (Other)
  Sender: FDA-Public Use
  Company Number: CHPA2009US08333

PATIENT
  Age: 76 Year
  Sex: Female

DRUGS (2)
  1. THERAPEUTIC MINERAL ICE (NCH) (MENTHOL) GEL [Suspect]
     Indication: ARTHRITIS
     Dosage: BID, TOPICAL
     Route: 061
  2. THERAPEUTIC MINERAL ICE (NCH) (MENTHOL) GEL [Suspect]
     Indication: TUMOUR PAIN
     Dosage: BID, TOPICAL
     Route: 061

REACTIONS (2)
  - NEOPLASM [None]
  - TUMOUR PAIN [None]
